FAERS Safety Report 9183875 (Version 1)
Quarter: 2013Q1

REPORT INFORMATION
  Report Type: Spontaneous
  Country: US (occurrence: US)
  Receive Date: 20130322
  Receipt Date: 20130322
  Transmission Date: 20140127
  Serious: No
  Sender: FDA-Public Use
  Company Number: US-BRISTOL-MYERS SQUIBB COMPANY-16651507

PATIENT
  Age: 65 Year
  Sex: Male
  Weight: 100 kg

DRUGS (2)
  1. ERBITUX [Suspect]
     Indication: COLON CANCER
     Dosage: 2ND INF-29MAY2012 ?INF 3
     Dates: start: 20120522
  2. ASPIRIN [Concomitant]

REACTIONS (2)
  - Skin disorder [Not Recovered/Not Resolved]
  - Dermatitis allergic [Unknown]
